FAERS Safety Report 7455938-8 (Version None)
Quarter: 2011Q2

REPORT INFORMATION
  Report Type: 
  Country: None (occurrence: None)
  Receive Date: 20110503
  Receipt Date: 20110427
  Transmission Date: 20111010
  Serious: Yes (Other)
  Sender: FDA-Public Use
  Company Number: PHHY2011GB35244

PATIENT
  Age: 75 Year
  Sex: Male

DRUGS (10)
  1. CHOLECALCIFEROL [Concomitant]
     Dosage: 400 IU, QD
     Route: 048
  2. METOPROLOL TARTRATE [Concomitant]
     Dosage: 50 MG, QD
     Route: 048
  3. DIGOXIN [Concomitant]
     Dosage: 0.25 MG, QD
     Route: 048
  4. FUROSEMIDE [Concomitant]
     Dosage: 40 MG, BID
     Route: 048
  5. CRANBERRY SAUCE [Interacting]
  6. CYANOCOBALAMIN [Concomitant]
     Dosage: 1000 UG, QD
     Route: 048
  7. SIMVASTATIN [Concomitant]
     Dosage: 10 MG, QD
  8. WARFARIN SODIUM [Suspect]
     Dosage: 22.5 MG, QW
  9. WARFARIN SODIUM [Interacting]
     Dosage: 20 MG, QW
  10. CALCIUM CARBONATE [Concomitant]
     Dosage: 1950 MG, QD
     Route: 048

REACTIONS (2)
  - DRUG INTERACTION [None]
  - INTERNATIONAL NORMALISED RATIO INCREASED [None]
